FAERS Safety Report 21667569 (Version 1)
Quarter: 2022Q4

REPORT INFORMATION
  Report Type: Spontaneous
  Country: US (occurrence: None)
  Receive Date: 20221130
  Receipt Date: 20221130
  Transmission Date: 20230112
  Serious: No
  Sender: FDA-Public Use
  Company Number: None

PATIENT
  Sex: Female

DRUGS (2)
  1. AMBRISENTAN [Suspect]
     Active Substance: AMBRISENTAN
     Dosage: FREQUENCY : DAILY;?
     Route: 048
  2. TYVASO [Suspect]
     Active Substance: TREPROSTINIL

REACTIONS (9)
  - Nausea [None]
  - Vomiting [None]
  - Diarrhoea [None]
  - Dyspnoea [None]
  - Oxygen saturation decreased [None]
  - Sputum abnormal [None]
  - Fatigue [None]
  - Anxiety [None]
  - Panic attack [None]
